FAERS Safety Report 7280398-X (Version None)
Quarter: 2011Q1

REPORT INFORMATION
  Report Type: 
  Country: None (occurrence: None)
  Receive Date: 20110208
  Receipt Date: 20110131
  Transmission Date: 20110831
  Serious: Yes (Hospitalization, Disabling, Other)
  Sender: FDA-Public Use
  Company Number: US-ELI_LILLY_AND_COMPANY-US201007000561

PATIENT
  Sex: Male
  Weight: 204.8 kg

DRUGS (1)
  1. BYETTA [Suspect]
     Dosage: UNK, UNKNOWN
     Dates: start: 20070607, end: 20090701

REACTIONS (4)
  - RENAL DISORDER [None]
  - PANCREATITIS [None]
  - BLOOD GLUCOSE FLUCTUATION [None]
  - INJURY [None]
